FAERS Safety Report 13302412 (Version 3)
Quarter: 2017Q2

REPORT INFORMATION
  Report Type: Spontaneous
  Country: JP (occurrence: JP)
  Receive Date: 20170307
  Receipt Date: 20170404
  Transmission Date: 20170830
  Serious: Yes (Death, Hospitalization, Other)
  Sender: FDA-Public Use
  Company Number: JP-PFIZER INC-2017096451

PATIENT
  Age: 69 Year
  Sex: Male

DRUGS (4)
  1. NOVASTAN [Suspect]
     Active Substance: ARGATROBAN
     Indication: HEPARIN-INDUCED THROMBOCYTOPENIA
     Dosage: UNK
     Route: 041
  2. NAFAMOSTAT MESILATE [Concomitant]
     Active Substance: NAFAMOSTAT MESYLATE
     Indication: ANTICOAGULANT THERAPY
     Dosage: UNK
     Route: 065
  3. HEPARIN SODIUM. [Suspect]
     Active Substance: HEPARIN SODIUM
     Indication: ANTICOAGULANT THERAPY
     Dosage: UNK
     Route: 041
  4. THROMBOMODULIN ALFA [Concomitant]
     Active Substance: THROMBOMODULIN ALFA
     Indication: DISSEMINATED INTRAVASCULAR COAGULATION
     Dosage: UNK
     Route: 065

REACTIONS (1)
  - Disseminated intravascular coagulation [Fatal]
